FAERS Safety Report 12880689 (Version 1)
Quarter: 2016Q4

REPORT INFORMATION
  Report Type: Report from Study
  Country: CH (occurrence: CH)
  Receive Date: 20161025
  Receipt Date: 20161025
  Transmission Date: 20170207
  Serious: Yes (Other)
  Sender: FDA-Public Use
  Company Number: CH-ROCHE-1844930

PATIENT

DRUGS (1)
  1. ALTEPLASE [Suspect]
     Active Substance: ALTEPLASE
     Indication: RETINAL HAEMORRHAGE
     Dosage: DOSE: 10 UG OF IN 0.05 ML SOLUTION GIVEN VIA SUBRETINAL INJECTION
     Route: 050

REACTIONS (1)
  - Macular hole [Unknown]
